FAERS Safety Report 4462227-2 (Version None)
Quarter: 2004Q3

REPORT INFORMATION
  Report Type: 
  Country: None (occurrence: None)
  Receive Date: 20040924
  Receipt Date: 20040913
  Transmission Date: 20050211
  Serious: Yes (Other)
  Sender: FDA-Public Use
  Company Number: 2004211051US

PATIENT
  Age: 75 Year
  Sex: Female
  Weight: 77.1 kg

DRUGS (2)
  1. DETROL LA [Suspect]
     Indication: URINARY TRACT DISORDER
     Dosage: QD, ORAL
     Route: 048
  2. MULTIVITAMIN [Concomitant]

REACTIONS (1)
  - CATARACT [None]
